FAERS Safety Report 6396912-2 (Version None)
Quarter: 2009Q4

REPORT INFORMATION
  Report Type: 
  Country: None (occurrence: None)
  Receive Date: 20091008
  Receipt Date: 20091008
  Transmission Date: 20100525
  Serious: Yes (Disabling)
  Sender: FDA-Public Use
  Company Number: None

PATIENT
  Age: 28 Year
  Sex: Female
  Weight: 97.5234 kg

DRUGS (3)
  1. ETODOLAC [Suspect]
     Indication: ARTHRITIS
     Dosage: 1 PILL X2 PO
     Route: 048
     Dates: start: 20090701, end: 20090907
  2. ETODOLAC [Suspect]
     Indication: INFLAMMATION
     Dosage: 1 PILL X2 PO
     Route: 048
     Dates: start: 20090701, end: 20090907
  3. ETODOLAC [Suspect]
     Indication: PAIN
     Dosage: 1 PILL X2 PO
     Route: 048
     Dates: start: 20090701, end: 20090907

REACTIONS (5)
  - ARTHRALGIA [None]
  - DRUG DISPENSING ERROR [None]
  - DRUG PRESCRIBING ERROR [None]
  - PRODUCT LABEL ON WRONG PRODUCT [None]
  - WRONG DRUG ADMINISTERED [None]
